FAERS Safety Report 5827164-7 (Version None)
Quarter: 2008Q3

REPORT INFORMATION
  Report Type: 
  Country: None (occurrence: None)
  Receive Date: 20080730
  Receipt Date: 20080721
  Transmission Date: 20090109
  Serious: Yes (Hospitalization, Other)
  Sender: FDA-Public Use
  Company Number: US-JNJFOC-20080204368

PATIENT
  Sex: Female
  Weight: 47.63 kg

DRUGS (1)
  1. REMICADE [Suspect]
     Indication: RHEUMATOID ARTHRITIS
     Route: 042

REACTIONS (4)
  - ARTHROPATHY [None]
  - CARDIAC DISORDER [None]
  - HOSPITALISATION [None]
  - RENAL DISORDER [None]
